FAERS Safety Report 21109545 (Version 1)
Quarter: 2022Q3

REPORT INFORMATION
  Report Type: Spontaneous
  Country: US (occurrence: US)
  Receive Date: 20220721
  Receipt Date: 20220721
  Transmission Date: 20221026
  Serious: No
  Sender: FDA-Public Use
  Company Number: US-ENDO PHARMACEUTICALS INC-2022-003072

PATIENT
  Age: 53 Year
  Sex: Female
  Weight: 48.98 kg

DRUGS (1)
  1. QWO [Suspect]
     Active Substance: COLLAGENASE CLOSTRIDIUM HISTOLYTICUM-AAES
     Indication: Cellulite
     Dosage: UNK UNKNOWN, UNKNOWN
     Route: 065
     Dates: start: 202111

REACTIONS (6)
  - Injection site indentation [Unknown]
  - Unevaluable event [Unknown]
  - Haemosiderin stain [Unknown]
  - Injection site bruising [Not Recovered/Not Resolved]
  - Injection site discolouration [Unknown]
  - Off label use [Unknown]

NARRATIVE: CASE EVENT DATE: 20211101
